FAERS Safety Report 26202148 (Version 1)
Quarter: 2025Q4

REPORT INFORMATION
  Report Type: Report from Study
  Country: US (occurrence: US)
  Receive Date: 20251226
  Receipt Date: 20251226
  Transmission Date: 20260118
  Serious: Yes (Other)
  Sender: AMGEN
  Company Number: US-AMGEN-USASL2025252818

PATIENT
  Age: 84 Year
  Sex: Female

DRUGS (2)
  1. KRYSTEXXA [Suspect]
     Active Substance: PEGLOTICASE
     Indication: Gouty tophus
     Dosage: UNK, Q2WK
     Route: 040
     Dates: start: 20220302
  2. KRYSTEXXA [Suspect]
     Active Substance: PEGLOTICASE
     Dosage: UNK, Q2WK
     Route: 040
     Dates: start: 20251219, end: 20251219

REACTIONS (4)
  - Unresponsive to stimuli [Recovered/Resolved]
  - Vision blurred [Unknown]
  - Hypoaesthesia [Unknown]
  - Vomiting [Unknown]

NARRATIVE: CASE EVENT DATE: 20251219
